FAERS Safety Report 8337086-8 (Version None)
Quarter: 2012Q2

REPORT INFORMATION
  Report Type: 
  Country: None (occurrence: None)
  Receive Date: 20120504
  Receipt Date: 20110708
  Transmission Date: 20120825
  Serious: No
  Sender: FDA-Public Use
  Company Number: US-TEVA-2011003653

PATIENT
  Sex: Male
  Weight: 95.34 kg

DRUGS (1)
  1. NUVIGIL [Suspect]
     Indication: NARCOLEPSY
     Route: 048
     Dates: start: 20100101

REACTIONS (4)
  - INTENTIONAL DRUG MISUSE [None]
  - FEELING ABNORMAL [None]
  - INSOMNIA [None]
  - DRUG INEFFECTIVE [None]
